FAERS Safety Report 13168843 (Version 3)
Quarter: 2017Q1

REPORT INFORMATION
  Report Type: Report from Study
  Country: US (occurrence: US)
  Receive Date: 20170131
  Receipt Date: 20170217
  Transmission Date: 20170428
  Serious: Yes (Other)
  Sender: FDA-Public Use
  Company Number: US-AMGEN-USASL2017013464

PATIENT
  Age: 34 Year
  Sex: Female

DRUGS (4)
  1. ENBREL [Suspect]
     Active Substance: ETANERCEPT
     Dosage: UNK UNK, 2 TIMES/WK
     Route: 065
  2. ENBREL [Suspect]
     Active Substance: ETANERCEPT
     Indication: PSORIASIS
     Dosage: 50 MG, 2 TIMES/WK
     Route: 058
  3. ENBREL [Suspect]
     Active Substance: ETANERCEPT
     Dosage: UNK
     Route: 065
     Dates: end: 2015
  4. ENBREL [Suspect]
     Active Substance: ETANERCEPT
     Dosage: UNK UNK, QMO
     Route: 065
     Dates: start: 2016

REACTIONS (7)
  - Infertility [Unknown]
  - Maternal exposure during pregnancy [Recovered/Resolved]
  - Drug effect incomplete [Unknown]
  - In vitro fertilisation [Unknown]
  - Caesarean section [Recovered/Resolved]
  - Psoriasis [Not Recovered/Not Resolved]
  - Injection site pain [Recovered/Resolved]

NARRATIVE: CASE EVENT DATE: 200806
